FAERS Safety Report 17573199 (Version 3)
Quarter: 2020Q2

REPORT INFORMATION
  Report Type: Report from Study
  Country: CO (occurrence: CO)
  Receive Date: 20200323
  Receipt Date: 20200408
  Transmission Date: 20200713
  Serious: Yes (Death, Hospitalization, Other)
  Sender: FDA-Public Use
  Company Number: NVSC2020CO081882

PATIENT
  Age: 97 Year
  Sex: Female
  Weight: 47 kg

DRUGS (2)
  1. REVOLADE [Suspect]
     Active Substance: ELTROMBOPAG
     Indication: IMMUNE THROMBOCYTOPENIA
     Dosage: 25 MG, QD
     Route: 048
  2. METOPROLOL. [Suspect]
     Active Substance: METOPROLOL
     Indication: HYPERTENSION
     Route: 048

REACTIONS (6)
  - Product dose omission [Unknown]
  - Sepsis [Unknown]
  - Respiratory arrest [Unknown]
  - Death [Fatal]
  - Dysphagia [Unknown]
  - Infection [Unknown]

NARRATIVE: CASE EVENT DATE: 20200321
